FAERS Safety Report 14204845 (Version 9)
Quarter: 2018Q2

REPORT INFORMATION
  Report Type: Spontaneous
  Country: US (occurrence: US)
  Receive Date: 20171120
  Receipt Date: 20180423
  Transmission Date: 20180711
  Serious: Yes (Other)
  Sender: FDA-Public Use
  Company Number: US-AMGEN-USASP2017172743

PATIENT
  Age: 50 Year
  Sex: Female
  Weight: 77.1 kg

DRUGS (11)
  1. XELJANZ XR [Suspect]
     Active Substance: TOFACITINIB CITRATE
     Indication: RHEUMATOID ARTHRITIS
     Dosage: 11 MG, QD
     Route: 048
     Dates: start: 20170111
  2. XELJANZ XR [Suspect]
     Active Substance: TOFACITINIB CITRATE
     Indication: POLYARTHRITIS
  3. GABAPENTIN. [Concomitant]
     Active Substance: GABAPENTIN
     Indication: FIBROMYALGIA
     Dosage: 100 MG, TID
     Route: 048
     Dates: start: 201701
  4. METOPROLOL. [Concomitant]
     Active Substance: METOPROLOL
     Indication: HYPERTENSION
     Dosage: 50 MG, QD
     Route: 048
  5. GABAPENTIN. [Concomitant]
     Active Substance: GABAPENTIN
     Dosage: 300 MG 2 CAPSULES AT NIGHT
     Route: 048
     Dates: start: 201701
  6. ENBREL [Suspect]
     Active Substance: ETANERCEPT
     Indication: RHEUMATOID ARTHRITIS
     Dosage: UNK
     Route: 065
     Dates: start: 201704, end: 201710
  7. METHOTREXATE. [Concomitant]
     Active Substance: METHOTREXATE
     Dosage: UNK
     Route: 058
  8. HUMIRA [Suspect]
     Active Substance: ADALIMUMAB
     Indication: RHEUMATOID ARTHRITIS
     Dosage: UNK
     Route: 058
     Dates: start: 2017
  9. METHOTREXATE. [Concomitant]
     Active Substance: METHOTREXATE
     Indication: PRODUCT USED FOR UNKNOWN INDICATION
     Dosage: UNK
     Route: 048
  10. TOPIRAMATE. [Concomitant]
     Active Substance: TOPIRAMATE
     Indication: FIBROMYALGIA
     Dosage: 25 MG AT NIGHT
     Route: 048
     Dates: start: 20170111
  11. METOPROLOL. [Concomitant]
     Active Substance: METOPROLOL
     Indication: PALPITATIONS

REACTIONS (5)
  - Cough [Not Recovered/Not Resolved]
  - Productive cough [Not Recovered/Not Resolved]
  - Fear of injection [Unknown]
  - Treatment failure [Unknown]
  - Rheumatoid arthritis [Not Recovered/Not Resolved]

NARRATIVE: CASE EVENT DATE: 2017
